FAERS Safety Report 10628414 (Version 1)
Quarter: 2014Q4

REPORT INFORMATION
  Report Type: Spontaneous
  Country: US (occurrence: US)
  Receive Date: 20141205
  Receipt Date: 20141205
  Transmission Date: 20150529
  Serious: No
  Sender: FDA-Public Use
  Company Number: US-BRISTOL-MYERS SQUIBB COMPANY-21436720

PATIENT
  Age: 17 Year
  Sex: Female
  Weight: 49.89 kg

DRUGS (2)
  1. ABILIFY [Suspect]
     Active Substance: ARIPIPRAZOLE
     Indication: AUTISM
  2. BENZATROPINE [Concomitant]
     Active Substance: BENZTROPINE

REACTIONS (1)
  - Rash [Unknown]
